FAERS Safety Report 17051249 (Version 3)
Quarter: 2019Q4

REPORT INFORMATION
  Report Type: Spontaneous
  Country: FR (occurrence: FR)
  Receive Date: 20191120
  Receipt Date: 20191206
  Transmission Date: 20200122
  Serious: Yes (Other)
  Sender: FDA-Public Use
  Company Number: FR-AUROBINDO-AUR-APL-2019-072983

PATIENT
  Age: 21 Year
  Sex: Male

DRUGS (21)
  1. VORICONAZOLE. [Suspect]
     Active Substance: VORICONAZOLE
     Indication: ASPERGILLUS INFECTION
  2. VORICONAZOLE. [Suspect]
     Active Substance: VORICONAZOLE
     Indication: CEREBRAL ASPERGILLOSIS
  3. AMPHOTERICIN B LIPID COMPLEX [Suspect]
     Active Substance: AMPHOTERICIN B
     Indication: CEREBRAL ASPERGILLOSIS
  4. POSACONAZOLE [Suspect]
     Active Substance: POSACONAZOLE
     Indication: CEREBRAL ASPERGILLOSIS
  5. POSACONAZOLE [Suspect]
     Active Substance: POSACONAZOLE
     Indication: ASPERGILLUS INFECTION
  6. VORICONAZOLE. [Suspect]
     Active Substance: VORICONAZOLE
     Indication: BRONCHOPULMONARY ASPERGILLOSIS
     Dosage: UNK
     Route: 065
  7. INTERFERON GAMMA NOS [Suspect]
     Active Substance: INTERFERON GAMMA
     Indication: CEREBRAL ASPERGILLOSIS
  8. INTERFERON GAMMA NOS [Suspect]
     Active Substance: INTERFERON GAMMA
     Indication: CHRONIC GRANULOMATOUS DISEASE
  9. AMPHOTERICIN B, LIPOSOME [Concomitant]
     Active Substance: AMPHOTERICIN B
     Indication: BRONCHOPULMONARY ASPERGILLOSIS
     Dosage: UNK
     Route: 065
  10. INTERFERON GAMMA NOS [Suspect]
     Active Substance: INTERFERON GAMMA
     Indication: BRONCHOPULMONARY ASPERGILLOSIS
     Dosage: UNK
     Route: 065
  11. ISAVUCONAZOLE [Concomitant]
     Active Substance: ISAVUCONAZOLE
     Indication: ANTIFUNGAL TREATMENT
     Dosage: 200 MG, QD
     Route: 048
  12. AMPHOTERICIN B LIPID COMPLEX [Suspect]
     Active Substance: AMPHOTERICIN B
     Indication: BRONCHOPULMONARY ASPERGILLOSIS
     Dosage: UNK
     Route: 065
  13. AMPHOTERICIN B LIPID COMPLEX [Suspect]
     Active Substance: AMPHOTERICIN B
     Indication: CHRONIC GRANULOMATOUS DISEASE
  14. INTERFERON GAMMA NOS [Suspect]
     Active Substance: INTERFERON GAMMA
     Indication: ASPERGILLUS INFECTION
  15. POSACONAZOLE [Suspect]
     Active Substance: POSACONAZOLE
     Indication: BRONCHOPULMONARY ASPERGILLOSIS
     Dosage: UNK
     Route: 065
  16. VORICONAZOLE. [Suspect]
     Active Substance: VORICONAZOLE
     Indication: CHRONIC GRANULOMATOUS DISEASE
  17. CASPOFUNGIN [Suspect]
     Active Substance: CASPOFUNGIN
     Indication: BRONCHOPULMONARY ASPERGILLOSIS
     Dosage: UNK
     Route: 065
  18. AMPHOTERICIN B LIPID COMPLEX [Suspect]
     Active Substance: AMPHOTERICIN B
     Indication: ASPERGILLUS INFECTION
  19. CASPOFUNGIN [Suspect]
     Active Substance: CASPOFUNGIN
     Indication: CEREBRAL ASPERGILLOSIS
  20. CASPOFUNGIN [Suspect]
     Active Substance: CASPOFUNGIN
     Indication: CHRONIC GRANULOMATOUS DISEASE
  21. POSACONAZOLE [Suspect]
     Active Substance: POSACONAZOLE
     Indication: CHRONIC GRANULOMATOUS DISEASE

REACTIONS (3)
  - Photosensitivity reaction [Unknown]
  - Therapy non-responder [Recovered/Resolved]
  - Drug ineffective [Unknown]
